FAERS Safety Report 8177270-X (Version None)
Quarter: 2012Q1

REPORT INFORMATION
  Report Type: 
  Country: None (occurrence: None)
  Receive Date: 20120301
  Receipt Date: 20120223
  Transmission Date: 20120608
  Serious: Yes (Hospitalization)
  Sender: FDA-Public Use
  Company Number: US-ALEXION-A201200210

PATIENT
  Sex: Female
  Weight: 53.1 kg

DRUGS (2)
  1. ZYRTEC [Concomitant]
     Dosage: 10 MG, QD
     Route: 048
     Dates: start: 20100513
  2. SOLIRIS [Suspect]
     Indication: PAROXYSMAL NOCTURNAL HAEMOGLOBINURIA
     Dosage: 900 MG, Q2W
     Route: 042
     Dates: start: 20090825

REACTIONS (9)
  - GINGIVAL PAIN [None]
  - INSOMNIA [None]
  - PANCYTOPENIA [None]
  - JAUNDICE [None]
  - VIRAL INFECTION [None]
  - NEUTROPENIA [None]
  - CELLULITIS [None]
  - PYREXIA [None]
  - HAEMOLYSIS [None]
